FAERS Safety Report 6295216-6 (Version None)
Quarter: 2009Q3

REPORT INFORMATION
  Report Type: 
  Country: None (occurrence: None)
  Receive Date: 20090803
  Receipt Date: 20090709
  Transmission Date: 20100115
  Serious: Yes (Other)
  Sender: FDA-Public Use
  Company Number: PHHY2008PA20713

PATIENT
  Sex: Male

DRUGS (2)
  1. EXELON [Suspect]
     Indication: DEMENTIA
     Dosage: 3 MG PER DAY
     Route: 048
     Dates: start: 20080805, end: 20080811
  2. AMLODIPINE [Concomitant]
     Dosage: 5 MG, UNK

REACTIONS (4)
  - AGGRESSION [None]
  - AMNESIA [None]
  - DISORIENTATION [None]
  - MENTAL DISORDER [None]
